FAERS Safety Report 4945370-0 (Version None)
Quarter: 2006Q1

REPORT INFORMATION
  Report Type: 
  Country: None (occurrence: None)
  Receive Date: 20060315
  Receipt Date: 20060315
  Transmission Date: 20060701
  Serious: Yes (Hospitalization)
  Sender: FDA-Public Use
  Company Number: None

PATIENT
  Age: 59 Year
  Sex: Male
  Weight: 105.6881 kg

DRUGS (5)
  1. LISINOPRIL [Suspect]
     Indication: HYPERTENSION
     Dosage: 10MG PO QD
     Route: 048
  2. IBUPROFEN [Suspect]
     Indication: PAIN
     Dosage: 800MG TID PO PRN
     Route: 048
  3. OLANZAPINE [Concomitant]
  4. GLIPIZIDE [Concomitant]
  5. DIVALPROEX SODIUM [Concomitant]

REACTIONS (2)
  - BLOOD CREATININE INCREASED [None]
  - HAEMATURIA [None]
